FAERS Safety Report 4821109-4 (Version None)
Quarter: 2005Q4

REPORT INFORMATION
  Report Type: 
  Country: None (occurrence: None)
  Receive Date: 20051104
  Receipt Date: 20050726
  Transmission Date: 20060501
  Serious: Yes (Hospitalization, Disabling)
  Sender: FDA-Public Use
  Company Number: US-MERCK-0507USA04220

PATIENT
  Age: 53 Year
  Sex: Female
  Weight: 73 kg

DRUGS (7)
  1. VIOXX [Suspect]
     Indication: PAIN
     Route: 048
     Dates: start: 20031001, end: 20040501
  2. VIOXX [Suspect]
     Route: 048
  3. VIOXX [Suspect]
     Indication: MIGRAINE
     Route: 048
     Dates: start: 20031001, end: 20040501
  4. VIOXX [Suspect]
     Route: 048
  5. TYLENOL (CAPLET) [Concomitant]
     Route: 065
  6. ASPIRIN [Concomitant]
     Route: 065
     Dates: start: 20030101
  7. PLAVIX [Concomitant]
     Route: 065
     Dates: start: 20030101

REACTIONS (4)
  - ARTERIOSCLEROSIS [None]
  - CEREBROVASCULAR ACCIDENT [None]
  - EYE PAIN [None]
  - LOSS OF CONSCIOUSNESS [None]
